FAERS Safety Report 15251833 (Version 2)
Quarter: 2018Q3

REPORT INFORMATION
  Report Type: Spontaneous
  Country: US (occurrence: US)
  Receive Date: 20180807
  Receipt Date: 20180905
  Transmission Date: 20181010
  Serious: No
  Sender: FDA-Public Use
  Company Number: US-009507513-1808USA001947

PATIENT
  Sex: Female

DRUGS (1)
  1. KEYTRUDA [Suspect]
     Active Substance: PEMBROLIZUMAB
     Indication: LUNG CARCINOMA CELL TYPE UNSPECIFIED STAGE IV
     Dosage: EVERY 3 WEEKS
     Route: 042
     Dates: start: 201707

REACTIONS (3)
  - Rash generalised [Not Recovered/Not Resolved]
  - Pruritus [Unknown]
  - Rash vesicular [Unknown]

NARRATIVE: CASE EVENT DATE: 201712
